FAERS Safety Report 18402444 (Version 1)
Quarter: 2020Q4

REPORT INFORMATION
  Report Type: Other
  Country: CA (occurrence: CA)
  Receive Date: 20201020
  Receipt Date: 20201020
  Transmission Date: 20210114
  Serious: Yes (Other)
  Sender: FDA-Public Use
  Company Number: CA-CELLTRION INC.-2020CA028915

PATIENT

DRUGS (12)
  1. ROSUVASTATIN. [Concomitant]
     Active Substance: ROSUVASTATIN
  2. RITUXIMAB (UNKNOWN) [Suspect]
     Active Substance: RITUXIMAB
     Indication: VASCULITIS
     Dosage: 500 MILLIGRAM, 1 EVERY 6 MONTHS
     Route: 042
  3. METFORMIN [Concomitant]
     Active Substance: METFORMIN HYDROCHLORIDE
     Route: 065
  4. CLONAZEPAM. [Concomitant]
     Active Substance: CLONAZEPAM
  5. GLICLAZIDE [Concomitant]
     Active Substance: GLICLAZIDE
  6. SOLIFENACIN [Concomitant]
     Active Substance: SOLIFENACIN
  7. RITUXIMAB (UNKNOWN) [Suspect]
     Active Substance: RITUXIMAB
     Indication: MICROSCOPIC POLYANGIITIS
     Dosage: 1000 MILLIGRAM
     Route: 042
  8. SEPTRA [Concomitant]
     Active Substance: SULFAMETHOXAZOLE\TRIMETHOPRIM
     Indication: PROPHYLAXIS
     Dosage: 3 EVERY 1 WEEKS
     Route: 065
  9. ACETAMINOPHEN;OXYCODONE HYDROCHLORIDE [Concomitant]
     Active Substance: ACETAMINOPHEN\OXYCODONE HYDROCHLORIDE
  10. FERROUS FUMARATE [Concomitant]
     Active Substance: FERROUS FUMARATE
  11. SALBUTAMOL [Concomitant]
     Active Substance: ALBUTEROL
  12. SPIRIVA [Concomitant]
     Active Substance: TIOTROPIUM BROMIDE MONOHYDRATE

REACTIONS (21)
  - Dyspnoea exertional [Unknown]
  - Cushingoid [Unknown]
  - Drug dependence [Unknown]
  - Post-traumatic stress disorder [Unknown]
  - Alanine aminotransferase increased [Unknown]
  - Headache [Unknown]
  - Hypoxia [Unknown]
  - Pyrexia [Unknown]
  - Schizoaffective disorder [Unknown]
  - Vomiting [Unknown]
  - Weight decreased [Unknown]
  - Anxiety [Unknown]
  - Blood pressure systolic increased [Unknown]
  - Intentional product misuse [Unknown]
  - Off label use [Unknown]
  - Haemoptysis [Unknown]
  - Interstitial lung disease [Unknown]
  - Asthma [Unknown]
  - Clubbing [Unknown]
  - Diarrhoea [Unknown]
  - Lung disorder [Unknown]
